FAERS Safety Report 12240085 (Version 2)
Quarter: 2016Q2

REPORT INFORMATION
  Report Type: Spontaneous
  Country: CH (occurrence: CH)
  Receive Date: 20160405
  Receipt Date: 20160428
  Transmission Date: 20160815
  Serious: Yes (Hospitalization, Other)
  Sender: FDA-Public Use
  Company Number: CH-ELI_LILLY_AND_COMPANY-CH201604000768

PATIENT
  Age: 32 Year
  Sex: Female

DRUGS (3)
  1. PARACETAMOL [Concomitant]
     Active Substance: ACETAMINOPHEN
  2. FLUOXETINE [Suspect]
     Active Substance: FLUOXETINE HYDROCHLORIDE
     Indication: PRODUCT USED FOR UNKNOWN INDICATION
  3. DOMPERIDONE [Suspect]
     Active Substance: DOMPERIDONE

REACTIONS (7)
  - Palpitations [Recovered/Resolved]
  - Vertigo [Recovered/Resolved]
  - Ventricular tachycardia [Recovered/Resolved]
  - Long QT syndrome congenital [Unknown]
  - Syncope [Recovered/Resolved]
  - Chest pain [Unknown]
  - Gene mutation [Unknown]
